FAERS Safety Report 10084949 (Version 1)
Quarter: 2014Q2

REPORT INFORMATION
  Report Type: Spontaneous
  Country: BR (occurrence: BR)
  Receive Date: 20140417
  Receipt Date: 20140417
  Transmission Date: 20141212
  Serious: Yes (Hospitalization, Disabling)
  Sender: FDA-Public Use
  Company Number: BR-ABBVIE-14P-020-1227202-00

PATIENT
  Sex: Female
  Weight: 68 kg

DRUGS (3)
  1. SYNTHROID [Suspect]
     Indication: PRODUCT USED FOR UNKNOWN INDICATION
     Dosage: DAILY DOSE: 125 MICROGRAM: IN THE MORNING, AFTER FASTING
     Dates: start: 2013
  2. SYNTHROID [Suspect]
  3. METFORMIN [Concomitant]
     Indication: GLYCOSYLATED HAEMOGLOBIN

REACTIONS (4)
  - Conjunctivitis [Unknown]
  - Eye inflammation [Unknown]
  - Vision blurred [Not Recovered/Not Resolved]
  - Eye swelling [Unknown]
